FAERS Safety Report 4721988-5 (Version None)
Quarter: 2005Q3

REPORT INFORMATION
  Report Type: 
  Country: None (occurrence: None)
  Receive Date: 20050722
  Receipt Date: 20050713
  Transmission Date: 20060218
  Serious: Yes (Hospitalization)
  Sender: FDA-Public Use
  Company Number: 2005UW10522

PATIENT

DRUGS (2)
  1. SEROQUEL [Suspect]
     Route: 048
  2. MINOCYCLINE HCL [Suspect]

REACTIONS (2)
  - PANCREATIC INSUFFICIENCY [None]
  - PANCREATITIS ACUTE [None]
